FAERS Safety Report 22059364 (Version 1)
Quarter: 2023Q1

REPORT INFORMATION
  Report Type: Spontaneous
  Country: US (occurrence: US)
  Receive Date: 20230303
  Receipt Date: 20230303
  Transmission Date: 20230417
  Serious: Yes (Death, Hospitalization)
  Sender: FDA-Public Use
  Company Number: US-MYLANLABS-2023M1023219

PATIENT
  Age: 69 Year
  Sex: Male
  Weight: 95.7 kg

DRUGS (1)
  1. APIXABAN [Suspect]
     Active Substance: APIXABAN
     Indication: Atrial fibrillation
     Dosage: 5 MILLIGRAM, BID
     Route: 065

REACTIONS (4)
  - Haemorrhage [Fatal]
  - Shock haemorrhagic [Fatal]
  - Hypotension [Fatal]
  - Syncope [Fatal]
